FAERS Safety Report 13449880 (Version 1)
Quarter: 2017Q2

REPORT INFORMATION
  Report Type: Spontaneous
  Country: US (occurrence: US)
  Receive Date: 20170417
  Receipt Date: 20170417
  Transmission Date: 20170830
  Serious: No
  Sender: FDA-Public Use
  Company Number: US-BION-20160197

PATIENT
  Age: 32 Year
  Sex: Male
  Weight: 95.25 kg

DRUGS (3)
  1. PRILOSEC [Concomitant]
     Active Substance: OMEPRAZOLE MAGNESIUM
     Indication: ANALGESIC THERAPY
  2. ALEVE [Suspect]
     Active Substance: NAPROXEN SODIUM
     Route: 048
  3. ALEVE [Suspect]
     Active Substance: NAPROXEN SODIUM
     Indication: ANALGESIC THERAPY
     Dosage: 1 GEL CAPSULE ONCE DAILY
     Route: 048
     Dates: start: 201604

REACTIONS (2)
  - Cold sweat [Recovered/Resolved]
  - Asthenia [Recovered/Resolved]
